FAERS Safety Report 9717882 (Version 1)
Quarter: 2013Q4

REPORT INFORMATION
  Report Type: Spontaneous
  Country: US (occurrence: US)
  Receive Date: 20131125
  Receipt Date: 20131125
  Transmission Date: 20140711
  Serious: No
  Sender: FDA-Public Use
  Company Number: US-VIVUS-2013V1000353

PATIENT
  Age: 44 Year
  Sex: Female
  Weight: 76.27 kg

DRUGS (3)
  1. QSYMIA 7.5MG/46MG [Suspect]
     Indication: WEIGHT DECREASED
     Route: 048
     Dates: start: 201304, end: 20130506
  2. LEVOTHYROXINE [Concomitant]
     Indication: HYPOTHYROIDISM
     Route: 048
     Dates: start: 1998
  3. HYDROXYZINE [Concomitant]
     Indication: SEASONAL ALLERGY
     Route: 048
     Dates: start: 2011

REACTIONS (1)
  - Inappropriate schedule of drug administration [Not Recovered/Not Resolved]
